FAERS Safety Report 7013167-6 (Version None)
Quarter: 2010Q3

REPORT INFORMATION
  Report Type: 
  Country: None (occurrence: None)
  Receive Date: 20100924
  Receipt Date: 20100915
  Transmission Date: 20110219
  Serious: Yes (Other)
  Sender: FDA-Public Use
  Company Number: US-SANOFI-AVENTIS-2010SA056250

PATIENT
  Sex: Male

DRUGS (2)
  1. LANTUS [Suspect]
     Indication: DIABETES MELLITUS
     Dosage: 50 TO 60 UNITS
     Route: 058
  2. OPTICLICK [Suspect]
     Indication: DIABETES MELLITUS
     Route: 058

REACTIONS (3)
  - FALL [None]
  - FOOT AMPUTATION [None]
  - SKIN ULCER [None]
